FAERS Safety Report 8104501-4 (Version None)
Quarter: 2012Q1

REPORT INFORMATION
  Report Type: 
  Country: None (occurrence: None)
  Receive Date: 20120130
  Receipt Date: 20120119
  Transmission Date: 20120608
  Serious: Yes (Other)
  Sender: FDA-Public Use
  Company Number: GB-JNJFOC-20110812309

PATIENT
  Sex: Female

DRUGS (2)
  1. INFLIXIMAB, RECOMBINANT [Suspect]
     Indication: RHEUMATOID ARTHRITIS
     Dosage: INFLIXIMAB STOPPED IN 2003
     Route: 042
     Dates: start: 20020215, end: 20030715
  2. ENBREL [Concomitant]

REACTIONS (1)
  - UTERINE CANCER [None]
